FAERS Safety Report 16698418 (Version 1)
Quarter: 2019Q3

REPORT INFORMATION
  Report Type: Report from Study
  Country: GB (occurrence: GB)
  Receive Date: 20190813
  Receipt Date: 20190813
  Transmission Date: 20191004
  Serious: Yes (Other)
  Sender: FDA-Public Use
  Company Number: PHHY2015GB167059

PATIENT
  Age: 25 Year
  Sex: Female

DRUGS (1)
  1. GILENYA [Suspect]
     Active Substance: FINGOLIMOD HYDROCHLORIDE
     Indication: MULTIPLE SCLEROSIS
     Dosage: QD
     Route: 048
     Dates: start: 20141013

REACTIONS (17)
  - Visual impairment [Unknown]
  - Pain in extremity [Unknown]
  - Balance disorder [Unknown]
  - Back pain [Unknown]
  - Dysarthria [Unknown]
  - Nasopharyngitis [Unknown]
  - Paraesthesia [Unknown]
  - Vitamin D deficiency [Unknown]
  - Dyspnoea [Unknown]
  - Neutropenia [Unknown]
  - Vertebral lesion [Unknown]
  - Eye pain [Recovered/Resolved]
  - Influenza [Unknown]
  - Memory impairment [Unknown]
  - Central nervous system lesion [Unknown]
  - Weight decreased [Unknown]
  - Libido decreased [Unknown]

NARRATIVE: CASE EVENT DATE: 20141205
